FAERS Safety Report 10987077 (Version 1)
Quarter: 2015Q1

REPORT INFORMATION
  Report Type: Spontaneous
  Country: US (occurrence: None)
  Receive Date: 20150316
  Receipt Date: 20150316
  Transmission Date: 20150721
  Serious: Yes (Other)
  Sender: FDA-Public Use
  Company Number: 1000069819

PATIENT
  Age: 55 Year
  Sex: Female

DRUGS (9)
  1. XANAX (ALPRAZOLAM) (ALPRAZOLAM) [Concomitant]
  2. SPIRIVA [Concomitant]
     Active Substance: TIOTROPIUM BROMIDE MONOHYDRATE
  3. DALIRESP [Suspect]
     Active Substance: ROFLUMILAST
     Indication: CHRONIC OBSTRUCTIVE PULMONARY DISEASE
     Route: 048
     Dates: start: 20140716
  4. NEXIUM (ESOMEPRAZOLE) (ESOMEPRAZOLE) [Concomitant]
  5. METHYLPREDNISOLONE (METHYLPREDNISOLONE) [Suspect]
     Active Substance: METHYLPREDNISOLONE
     Indication: CHRONIC OBSTRUCTIVE PULMONARY DISEASE
     Dates: start: 20140808
  6. SYMBICORT (BUDESONIDE W/FORMOTEROL FUMARATE) (BUDESONIDE W/FORMOTEROL FUMARATE) [Concomitant]
  7. BLOOD PRESSURE MEDICATION NOS (BLOOD PRESSURE MEDICATION NOS) (BLOOD PRESSURE MEDICATION NOS) [Concomitant]
  8. FLONASE (FLUTICASONE PROPIONATE) (FLUTICASONE PROPIONATE) [Concomitant]
  9. ALBUTEROL (ALBUTEROL) (ALBUTEROL) [Concomitant]
     Active Substance: ALBUTEROL

REACTIONS (5)
  - Chronic obstructive pulmonary disease [None]
  - Diarrhoea [None]
  - Abdominal discomfort [None]
  - Pruritus [None]
  - Panic attack [None]

NARRATIVE: CASE EVENT DATE: 201407
